FAERS Safety Report 7072904-5 (Version None)
Quarter: 2010Q4

REPORT INFORMATION
  Report Type: 
  Country: None (occurrence: None)
  Receive Date: 20101029
  Receipt Date: 20100329
  Transmission Date: 20110411
  Serious: No
  Sender: FDA-Public Use
  Company Number: A0852390A

PATIENT
  Age: 79 Year
  Sex: Female

DRUGS (6)
  1. ADVAIR DISKUS 100/50 [Suspect]
     Indication: CHRONIC OBSTRUCTIVE PULMONARY DISEASE
     Dosage: 1PUFF TWICE PER DAY
     Route: 055
     Dates: start: 20050101
  2. SPIRIVA [Concomitant]
  3. HYZAAR [Concomitant]
  4. DILTIAZEM [Concomitant]
  5. IBUPROFEN [Concomitant]
  6. VITAMINS [Concomitant]

REACTIONS (2)
  - CANDIDIASIS [None]
  - DYSPHONIA [None]
